FAERS Safety Report 4794955-3 (Version None)
Quarter: 2005Q3

REPORT INFORMATION
  Report Type: 
  Country: None (occurrence: None)
  Receive Date: 20050914
  Receipt Date: 20040824
  Transmission Date: 20060218
  Serious: Yes (Death)
  Sender: FDA-Public Use
  Company Number: 163-20785-04080582

PATIENT
  Age: 86 Year
  Sex: Male

DRUGS (7)
  1. THALOMID [Suspect]
     Indication: MULTIPLE MYELOMA
     Dosage: 50 MG, DAILY, ORAL
     Route: 048
     Dates: start: 20040602, end: 20040802
  2. OXYCONTIN [Concomitant]
  3. NEURONTIN [Concomitant]
  4. VICODIN [Concomitant]
  5. TRAZODONE HCL [Concomitant]
  6. TIGAN [Concomitant]
  7. ZOLOFT [Concomitant]

REACTIONS (5)
  - DEATH [None]
  - DISEASE PROGRESSION [None]
  - DYSSTASIA [None]
  - FATIGUE [None]
  - PRURITUS [None]
